FAERS Safety Report 9552259 (Version 1)
Quarter: 2013Q3

REPORT INFORMATION
  Report Type: Spontaneous
  Country: US (occurrence: None)
  Receive Date: 20130724
  Receipt Date: 20130724
  Transmission Date: 20140515
  Serious: Yes (Other)
  Sender: FDA-Public Use
  Company Number: PHEH2012US013259

PATIENT
  Age: 51 Year
  Sex: Female

DRUGS (1)
  1. RECLAST [Suspect]
     Indication: OSTEOPOROSIS
     Route: 042
     Dates: start: 20110920

REACTIONS (4)
  - Iritis [None]
  - Conjunctivitis [None]
  - Vision blurred [None]
  - Eye pruritus [None]
